FAERS Safety Report 11135102 (Version 1)
Quarter: 2015Q2

REPORT INFORMATION
  Report Type: Spontaneous
  Country: TW (occurrence: TW)
  Receive Date: 20150525
  Receipt Date: 20150525
  Transmission Date: 20150821
  Serious: Yes (Life-Threatening, Hospitalization)
  Sender: FDA-Public Use
  Company Number: TW-ASTRAZENECA-2015SE51018

PATIENT
  Age: 45 Year
  Sex: Female

DRUGS (7)
  1. QUETIAPINE [Suspect]
     Active Substance: QUETIAPINE
     Dosage: EMPTY DRUG PACKS EQUATING TO 16800 MG WERE FOUND WITH PATIENT.
     Route: 048
  2. SULPIRIDE [Suspect]
     Active Substance: SULPIRIDE
     Dosage: EMPTY DRUG PACKS EQUATING TO 11200 MG WERE FOUND WITH PATIENT.
     Route: 065
  3. LORAZEPAM. [Suspect]
     Active Substance: LORAZEPAM
     Dosage: EMPTY DRUG PACKS EQUATING TO 84 MG WERE FOUND WITH PATIENT.
     Route: 065
  4. FLURAZEPAM [Suspect]
     Active Substance: FLURAZEPAM\FLURAZEPAM HYDROCHLORIDE
     Dosage: EMPTY DRUG PACKS EQUATING TO 1680 MG WERE FOUND WITH PATIENT.
     Route: 065
  5. MIRTAZAPINE. [Suspect]
     Active Substance: MIRTAZAPINE
     Dosage: EMPTY DRUG PACKS EQUATING TO 1680 MG WERE FOUND WITH PATIENT.
     Route: 065
  6. HYDROXYZINE [Suspect]
     Active Substance: HYDROXYZINE\HYDROXYZINE HYDROCHLORIDE
     Dosage: EMPTY DRUG PACKS EQUATING TO 700 MG WERE FOUND WITH PATIENT.
     Route: 065
  7. ZALEPLON. [Suspect]
     Active Substance: ZALEPLON
     Dosage: EMPTY DRUG PACKS EQUATING TO 560 MG WERE FOUND WITH PATIENT.
     Route: 065

REACTIONS (4)
  - Overdose [Unknown]
  - Ventricular fibrillation [Recovered/Resolved]
  - Sinus tachycardia [Recovered/Resolved]
  - Coma [Recovered/Resolved]
